FAERS Safety Report 7071854-8 (Version None)
Quarter: 2010Q4

REPORT INFORMATION
  Report Type: 
  Country: None (occurrence: None)
  Receive Date: 20101029
  Receipt Date: 20091028
  Transmission Date: 20110411
  Serious: No
  Sender: FDA-Public Use
  Company Number: A0813795A

PATIENT
  Age: 84 Year
  Sex: Female

DRUGS (6)
  1. ADVAIR DISKUS 100/50 [Suspect]
     Indication: PRODUCT USED FOR UNKNOWN INDICATION
     Route: 055
  2. AMLODIPINE [Concomitant]
  3. LIPITOR [Concomitant]
  4. ASPIRIN [Concomitant]
  5. LISINOPRIL [Concomitant]
  6. VITAMINS [Concomitant]

REACTIONS (3)
  - MOUTH ULCERATION [None]
  - TREMOR [None]
  - WEIGHT DECREASED [None]
